FAERS Safety Report 6284802-5 (Version None)
Quarter: 2009Q3

REPORT INFORMATION
  Report Type: 
  Country: None (occurrence: None)
  Receive Date: 20090727
  Receipt Date: 20090715
  Transmission Date: 20100115
  Serious: Yes (Death)
  Sender: FDA-Public Use
  Company Number: JP-PFIZER INC-2009242460

PATIENT
  Age: 15 Year

DRUGS (4)
  1. TRIAZOLAM [Suspect]
     Dosage: 0.25 MG, 6 DF
     Route: 048
  2. FERROUS CITRATE [Suspect]
     Dosage: 50 MG, 30 DF
  3. REBAMIPIDE [Suspect]
     Dosage: 100 MG, 60 DF
  4. FLUNITRAZEPAM [Suspect]
     Dosage: 2 MG, 10 DF

REACTIONS (2)
  - INTENTIONAL OVERDOSE [None]
  - MULTI-ORGAN FAILURE [None]
